FAERS Safety Report 5026248-3 (Version None)
Quarter: 2006Q2

REPORT INFORMATION
  Report Type: 
  Country: None (occurrence: None)
  Receive Date: 20060608
  Receipt Date: 20060526
  Transmission Date: 20061013
  Serious: Yes (Death, Hospitalization)
  Sender: FDA-Public Use
  Company Number: 2006064822

PATIENT
  Age: 61 Year
  Sex: Female

DRUGS (7)
  1. SUTENT [Suspect]
     Indication: METASTATIC RENAL CELL CARCINOMA
     Dosage: 50 MG (50 MG, 1 IN 1 D), ORAL
     Route: 048
     Dates: start: 20060428, end: 20060522
  2. MARCUMAR [Suspect]
     Indication: ILL-DEFINED DISORDER
     Dosage: ORAL
     Route: 048
     Dates: end: 20060522
  3. BISOPROLOL FUMARATE [Concomitant]
  4. RAMIPRIL [Concomitant]
  5. FENTANYL [Concomitant]
  6. LACTULOSE [Concomitant]
  7. PANTOPRAZOL (PANTOPRAZOLE) [Concomitant]

REACTIONS (3)
  - CEREBRAL HAEMORRHAGE [None]
  - DEHYDRATION [None]
  - MUCOSAL INFLAMMATION [None]
